FAERS Safety Report 11044240 (Version 2)
Quarter: 2015Q2

REPORT INFORMATION
  Report Type: Spontaneous
  Country: US (occurrence: US)
  Receive Date: 20150417
  Receipt Date: 20150618
  Transmission Date: 20150821
  Serious: Yes (Hospitalization, Other)
  Sender: FDA-Public Use
  Company Number: US-009507513-1112USA00011

PATIENT
  Sex: Female

DRUGS (2)
  1. FOSAMAX [Suspect]
     Active Substance: ALENDRONATE SODIUM
     Indication: BONE DENSITY DECREASED
     Dosage: 70 MG, QW
     Route: 048
     Dates: start: 20031124, end: 20050724
  2. BONIVA [Suspect]
     Active Substance: IBANDRONATE SODIUM
     Indication: BONE DENSITY DECREASED
     Dosage: 150 MG, QM
     Route: 048
     Dates: start: 20060216, end: 20100901

REACTIONS (39)
  - Intramedullary rod insertion [Unknown]
  - Fracture nonunion [Unknown]
  - Haematoma [Unknown]
  - Hyponatraemia [Unknown]
  - Perforated ulcer [Unknown]
  - Muscular weakness [Not Recovered/Not Resolved]
  - Hysterectomy [Unknown]
  - Osteoarthritis [Unknown]
  - Pseudarthrosis [Unknown]
  - Aspartate aminotransferase increased [Unknown]
  - Head injury [Unknown]
  - Hyperlipidaemia [Unknown]
  - Alanine aminotransferase increased [Unknown]
  - Joint irrigation [Unknown]
  - Haematocrit decreased [Unknown]
  - Internal fixation of fracture [Unknown]
  - Medical device removal [Unknown]
  - Bone debridement [Unknown]
  - Sleep disorder [Unknown]
  - Hip arthroplasty [Unknown]
  - Haematoma evacuation [Unknown]
  - Anxiety [Unknown]
  - Depression [Unknown]
  - Sciatica [Unknown]
  - Anaemia postoperative [Unknown]
  - Intervertebral disc disorder [Unknown]
  - International normalised ratio increased [Unknown]
  - Pain in extremity [Not Recovered/Not Resolved]
  - Femur fracture [Unknown]
  - Toxic encephalopathy [Recovered/Resolved]
  - Internal fixation of fracture [Unknown]
  - Hip arthroplasty [Unknown]
  - Wound haemorrhage [Unknown]
  - Pain [Not Recovered/Not Resolved]
  - Gastric ulcer surgery [Unknown]
  - Surgical failure [Unknown]
  - Post procedural infection [Unknown]
  - Hypertension [Unknown]
  - Pain in extremity [Unknown]

NARRATIVE: CASE EVENT DATE: 20070308
